FAERS Safety Report 17853712 (Version 2)
Quarter: 2021Q4

REPORT INFORMATION
  Report Type: Report from Study
  Country: US (occurrence: US)
  Receive Date: 20200602
  Receipt Date: 20211006
  Transmission Date: 20220303
  Serious: No
  Sender: FDA-Public Use
  Company Number: US-EUSA PHARMA (NETHERLANDS) B.V.-2020US000096

PATIENT

DRUGS (10)
  1. SILTUXIMAB [Suspect]
     Active Substance: SILTUXIMAB
     Indication: Castleman^s disease
     Dosage: UNK (CYCLE 1)
     Route: 065
     Dates: start: 20180627
  2. SILTUXIMAB [Suspect]
     Active Substance: SILTUXIMAB
     Dosage: UNK (CYCLE 2)
     Route: 065
  3. SILTUXIMAB [Suspect]
     Active Substance: SILTUXIMAB
     Dosage: UNK (CYCLE 3)
     Route: 065
  4. SILTUXIMAB [Suspect]
     Active Substance: SILTUXIMAB
     Dosage: UNK (CYCLE 4)
     Route: 065
  5. SILTUXIMAB [Suspect]
     Active Substance: SILTUXIMAB
     Dosage: UNK (CYCLE 5)
     Route: 065
  6. SILTUXIMAB [Suspect]
     Active Substance: SILTUXIMAB
     Dosage: UNK (CYCLE 6)
     Route: 065
  7. SILTUXIMAB [Suspect]
     Active Substance: SILTUXIMAB
     Dosage: UNK (CYCLE 7)
     Route: 065
  8. SILTUXIMAB [Suspect]
     Active Substance: SILTUXIMAB
     Dosage: UNK (CYCLE 8)
     Route: 065
  9. SILTUXIMAB [Suspect]
     Active Substance: SILTUXIMAB
     Dosage: UNK (CYCLE 9)
     Route: 065
     Dates: end: 20190612
  10. SILTUXIMAB [Suspect]
     Active Substance: SILTUXIMAB
     Dosage: UNK (CYCLE 10)
     Route: 065
     Dates: start: 20191023, end: 20191023

REACTIONS (2)
  - Urticaria [Recovered/Resolved]
  - Swelling [Recovered/Resolved]

NARRATIVE: CASE EVENT DATE: 20190310
